FAERS Safety Report 12417048 (Version 1)
Quarter: 2016Q2

REPORT INFORMATION
  Report Type: Spontaneous
  Country: CA (occurrence: CA)
  Receive Date: 20160530
  Receipt Date: 20160530
  Transmission Date: 20160815
  Serious: Yes (Hospitalization, Other)
  Sender: FDA-Public Use
  Company Number: CA-PFIZER INC-2016279813

PATIENT
  Age: 67 Year
  Sex: Male

DRUGS (11)
  1. ELIQUIS [Concomitant]
     Active Substance: APIXABAN
     Dosage: 5 MG, BID
     Route: 048
  2. ASACOL [Suspect]
     Active Substance: MESALAMINE
     Dosage: UNK
     Route: 065
     Dates: end: 20130204
  3. TECTA [Suspect]
     Active Substance: PANTOPRAZOLE MAGNESIUM
     Dosage: 40 MG, QD
     Route: 048
  4. HUMIRA [Suspect]
     Active Substance: ADALIMUMAB
     Dosage: UNK
     Route: 065
     Dates: end: 20120201
  5. NITRO /00003201/ [Concomitant]
     Active Substance: NITROGLYCERIN
     Dosage: UNK
     Route: 060
  6. ROSUVASTATIN CALCIUM. [Concomitant]
     Active Substance: ROSUVASTATIN CALCIUM
     Dosage: 5 MG, QD
     Route: 048
  7. IMURAN [Concomitant]
     Active Substance: AZATHIOPRINE
     Dosage: 612.5 MG, QD
     Route: 048
  8. TRAMADOL + ACETAMINOFEN MK [Concomitant]
     Dosage: 37.5/325 MG, BID
     Route: 048
  9. METOPROLOL. [Concomitant]
     Active Substance: METOPROLOL
     Dosage: 12.5 MG, BID
     Route: 048
  10. EZETIMIBE ATERIMIBE [Concomitant]
     Dosage: 10 MG, QD
     Route: 048
  11. PREDNISONE. [Concomitant]
     Active Substance: PREDNISONE
     Dosage: 5 MG, QD
     Route: 048

REACTIONS (6)
  - Tachycardia [Unknown]
  - Peripheral artery occlusion [Unknown]
  - Atrial fibrillation [Unknown]
  - Crohn^s disease [Recovered/Resolved with Sequelae]
  - Jaundice [Unknown]
  - Intestinal resection [Unknown]

NARRATIVE: CASE EVENT DATE: 20151022
